FAERS Safety Report 11196515 (Version 1)
Quarter: 2015Q2

REPORT INFORMATION
  Report Type: Spontaneous
  Country: BR (occurrence: BR)
  Receive Date: 20150617
  Receipt Date: 20150617
  Transmission Date: 20150821
  Serious: Yes (Other)
  Sender: FDA-Public Use
  Company Number: BR-ABBVIE-15K-020-1408705-00

PATIENT
  Age: 39 Year
  Sex: Male
  Weight: 77 kg

DRUGS (4)
  1. HUMIRA [Suspect]
     Active Substance: ADALIMUMAB
     Dosage: WEEK FOUR
     Route: 058
     Dates: start: 201407, end: 20140726
  2. HUMIRA [Suspect]
     Active Substance: ADALIMUMAB
     Dosage: WEEK TWO
     Route: 058
     Dates: start: 201406, end: 201406
  3. HUMIRA [Suspect]
     Active Substance: ADALIMUMAB
     Indication: CROHN^S DISEASE
     Dosage: WEEK 0
     Route: 058
     Dates: start: 20140610, end: 20140610
  4. MESALAZINE [Concomitant]
     Active Substance: MESALAMINE
     Indication: CROHN^S DISEASE

REACTIONS (4)
  - Intestinal fistula [Recovered/Resolved]
  - Road traffic accident [Recovered/Resolved]
  - Hepatitis [Recovering/Resolving]
  - Post-traumatic stress disorder [Unknown]

NARRATIVE: CASE EVENT DATE: 20140726
